FAERS Safety Report 9553510 (Version 1)
Quarter: 2013Q3

REPORT INFORMATION
  Report Type: Spontaneous
  Country: CA (occurrence: CA)
  Receive Date: 20130925
  Receipt Date: 20130925
  Transmission Date: 20140515
  Serious: Yes (Other)
  Sender: FDA-Public Use
  Company Number: CA-PFIZER INC-2013272460

PATIENT
  Sex: Female

DRUGS (1)
  1. ADVIL COLD AND SINUS [Suspect]
     Dosage: 2 DF, 4X/DAY

REACTIONS (4)
  - Deafness [Unknown]
  - Hypersensitivity [Unknown]
  - Urticaria [Unknown]
  - Insomnia [Unknown]
